FAERS Safety Report 5723983-6 (Version None)
Quarter: 2008Q2

REPORT INFORMATION
  Report Type: 
  Country: None (occurrence: None)
  Receive Date: 20080428
  Receipt Date: 20080415
  Transmission Date: 20081010
  Serious: Yes (Death)
  Sender: FDA-Public Use
  Company Number: 026868

PATIENT
  Age: 46 Year
  Sex: 0

DRUGS (2)
  1. PROPRANOLOL [Suspect]
     Dosage: UNK, UNK, ORAL
     Route: 048
  2. DOXEPIN HCL [Suspect]
     Dosage: UNK, UNK, ORAL
     Route: 048

REACTIONS (2)
  - COMPLETED SUICIDE [None]
  - DRUG TOXICITY [None]
